FAERS Safety Report 5739716-3 (Version None)
Quarter: 2008Q2

REPORT INFORMATION
  Report Type: 
  Country: None (occurrence: None)
  Receive Date: 20080513
  Receipt Date: 20080429
  Transmission Date: 20081010
  Serious: Yes (Death)
  Sender: FDA-Public Use
  Company Number: 100#03#2008-01070

PATIENT
  Age: 66 Year
  Sex: Female

DRUGS (6)
  1. ZOPICLONE PLIVA (ZOPICLONE) [Suspect]
     Indication: SLEEP DISORDER
     Dosage: (7.5 MG WAS PRESCRIBED PRIOR TO THE OVERDOSE) (7.5 MG), ORAL
     Route: 048
  2. MIRTAZAPINE [Suspect]
     Indication: DRUG USE FOR UNKNOWN INDICATION
  3. AMITRIPTLINE HCL [Suspect]
     Indication: DRUG USE FOR UNKNOWN INDICATION
  4. ANADIN EXTRA (ASCORBIC ACID, ACETYLSALICYLIC ACID, CAFFEINE, PARACETAM [Suspect]
     Indication: DRUG USE FOR UNKNOWN INDICATION
  5. DILTIAZEM [Suspect]
     Indication: DRUG USE FOR UNKNOWN INDICATION
  6. ACETYLSALICYLIC ACID SRT [Concomitant]

REACTIONS (4)
  - COMPLETED SUICIDE [None]
  - HEPATIC STEATOSIS [None]
  - OVERDOSE [None]
  - PULMONARY OEDEMA [None]
